FAERS Safety Report 7471641-2 (Version None)
Quarter: 2011Q2

REPORT INFORMATION
  Report Type: 
  Country: None (occurrence: None)
  Receive Date: 20110502
  Receipt Date: 20110415
  Transmission Date: 20111010
  Serious: Yes (Death, Hospitalization, Other)
  Sender: FDA-Public Use
  Company Number: AUR-APL-2011-01325

PATIENT
  Age: 10 Year
  Sex: Female

DRUGS (1)
  1. CEFTRIAXONE [Suspect]
     Indication: BACTERAEMIA

REACTIONS (14)
  - HAEMODIALYSIS [None]
  - RESPIRATORY FAILURE [None]
  - DRUG SPECIFIC ANTIBODY PRESENT [None]
  - HAEMOGLOBIN DECREASED [None]
  - FAECAL INCONTINENCE [None]
  - DISSEMINATED INTRAVASCULAR COAGULATION [None]
  - LUNG INFILTRATION [None]
  - PALLOR [None]
  - PLEURAL EFFUSION [None]
  - URINARY INCONTINENCE [None]
  - TACHYCARDIA [None]
  - RENAL FAILURE ACUTE [None]
  - MENTAL STATUS CHANGES [None]
  - MULTI-ORGAN FAILURE [None]
